FAERS Safety Report 4757197-3 (Version None)
Quarter: 2005Q3

REPORT INFORMATION
  Report Type: 
  Country: None (occurrence: None)
  Receive Date: 20050829
  Receipt Date: 20050829
  Transmission Date: 20060218
  Serious: Yes (Death, Hospitalization)
  Sender: FDA-Public Use
  Company Number: None

PATIENT
  Sex: Female
  Weight: 65 kg

DRUGS (2)
  1. GEMCITABINE [Suspect]
     Indication: UTERINE CANCER
     Dosage: SEE IMAGE
     Route: 042
     Dates: start: 20050719
  2. DOCETAXEL [Suspect]
     Dosage: SEE IMAGE
     Route: 042
     Dates: start: 20050719

REACTIONS (4)
  - OXYGEN SATURATION DECREASED [None]
  - PALLOR [None]
  - PLEURAL EFFUSION [None]
  - STUPOR [None]
